FAERS Safety Report 10158623 (Version 1)
Quarter: 2014Q2

REPORT INFORMATION
  Report Type: Spontaneous
  Country: US (occurrence: US)
  Receive Date: 20140508
  Receipt Date: 20140508
  Transmission Date: 20141212
  Serious: No
  Sender: FDA-Public Use
  Company Number: US-009507513-1405USA001685

PATIENT
  Age: 53 Year
  Sex: Male

DRUGS (5)
  1. PEGINTRON [Suspect]
     Indication: HEPATITIS C
     Dosage: 150 MICROGRAM, ONCE A WEEK
     Route: 058
     Dates: start: 20140430
  2. AMBIEN [Concomitant]
  3. LYRICA [Concomitant]
  4. TRAMADOL HYDROCHLORIDE [Concomitant]
  5. GABAPENTIN [Concomitant]

REACTIONS (6)
  - Dyspnoea [Recovered/Resolved]
  - Pyrexia [Recovered/Resolved]
  - Chills [Recovered/Resolved]
  - Insomnia [Unknown]
  - Wrong technique in drug usage process [Unknown]
  - Accidental exposure to product [Unknown]
